FAERS Safety Report 9858020 (Version 6)
Quarter: 2014Q2

REPORT INFORMATION
  Report Type: Spontaneous
  Country: IT (occurrence: IT)
  Receive Date: 20140131
  Receipt Date: 20140424
  Transmission Date: 20141212
  Serious: Yes (Hospitalization)
  Sender: FDA-Public Use
  Company Number: IT-VERTEX PHARMACEUTICALS INC-2014-000350

PATIENT
  Age: 70 Year
  Sex: Male

DRUGS (7)
  1. INCIVO [Suspect]
     Indication: HEPATITIS C
     Dosage: 1125 MG, BID
     Route: 048
     Dates: start: 20131119, end: 20140123
  2. RIBAVIRINE [Suspect]
     Indication: HEPATITIS C
     Dosage: 800 MG, QD
     Route: 065
     Dates: start: 20131001, end: 20140123
  3. PEGINTRON [Suspect]
     Indication: HEPATITIS C
     Dosage: 100 ?G, QW
     Route: 065
     Dates: start: 20131001
  4. PEGINTRON [Suspect]
     Dosage: 80 ?G, QW
     Route: 065
     Dates: end: 20140121
  5. NEORECORMON [Concomitant]
     Indication: PRODUCT USED FOR UNKNOWN INDICATION
     Dosage: 30000 IU, QW
     Route: 058
     Dates: start: 20131230
  6. CIPROFLOXACINE [Concomitant]
     Indication: PRODUCT USED FOR UNKNOWN INDICATION
     Dosage: 500 MG, UNK
     Dates: start: 20131217, end: 20131224
  7. AERIUS [Concomitant]
     Indication: PRODUCT USED FOR UNKNOWN INDICATION
     Dosage: UNK

REACTIONS (4)
  - Respiratory tract infection [Unknown]
  - Left ventricular failure [Unknown]
  - Pancytopenia [Unknown]
  - Blood creatinine increased [Unknown]
